FAERS Safety Report 9382296 (Version 3)
Quarter: 2013Q4

REPORT INFORMATION
  Report Type: Spontaneous
  Country: US (occurrence: US)
  Receive Date: 20130703
  Receipt Date: 20131004
  Transmission Date: 20140711
  Serious: Yes (Death, Life-Threatening, Hospitalization)
  Sender: FDA-Public Use
  Company Number: US-CELGENEUS-163-21880-12122996

PATIENT
  Age: 58 Year
  Sex: Female
  Weight: 90 kg

DRUGS (83)
  1. REVLIMID [Suspect]
     Indication: PLASMA CELL MYELOMA
     Dosage: 25 MILLIGRAM
     Route: 048
     Dates: start: 20121002, end: 20130127
  2. DEXAMETHASONE [Suspect]
     Indication: PLASMA CELL MYELOMA
     Dosage: 40 MILLIGRAM
     Route: 048
     Dates: start: 20120925, end: 20130122
  3. CITALOPRAM [Concomitant]
     Indication: PRODUCT USED FOR UNKNOWN INDICATION
     Route: 065
     Dates: start: 20120925
  4. GLUCOSAMINE-CHONDROITIN [Concomitant]
     Indication: PRODUCT USED FOR UNKNOWN INDICATION
     Route: 065
     Dates: start: 2005
  5. LEVOTHYROXINE [Concomitant]
     Indication: PRODUCT USED FOR UNKNOWN INDICATION
     Route: 065
     Dates: start: 2008
  6. LORAZEPAM [Concomitant]
     Indication: PRODUCT USED FOR UNKNOWN INDICATION
     Route: 065
     Dates: start: 2012
  7. OMEPRAZOLE [Concomitant]
     Indication: PRODUCT USED FOR UNKNOWN INDICATION
     Route: 065
     Dates: start: 2008
  8. MULTIVITAMINS [Concomitant]
     Indication: PRODUCT USED FOR UNKNOWN INDICATION
     Route: 065
     Dates: start: 2005
  9. PRESERVISION WITH LUTEIN [Concomitant]
     Indication: PRODUCT USED FOR UNKNOWN INDICATION
     Route: 065
     Dates: start: 2005
  10. PANTOPRAZOLE [Concomitant]
     Indication: PRODUCT USED FOR UNKNOWN INDICATION
     Route: 065
     Dates: start: 20121022, end: 20121023
  11. ESOMEPRAZOLE [Concomitant]
     Indication: PRODUCT USED FOR UNKNOWN INDICATION
     Route: 065
     Dates: start: 20121022, end: 20121107
  12. PANTOPRAZOLE BOLUS [Concomitant]
     Indication: PRODUCT USED FOR UNKNOWN INDICATION
     Route: 065
     Dates: start: 20130129, end: 20130131
  13. MAGNESIUM SULFATE [Concomitant]
     Indication: ADVERSE EVENT
     Route: 065
     Dates: start: 20121022, end: 20121103
  14. MAGNESIUM SULFATE [Concomitant]
     Route: 065
     Dates: start: 20121218, end: 20121218
  15. MAGNESIUM SULFATE [Concomitant]
     Route: 065
     Dates: start: 20130129, end: 20130131
  16. POTASSIUM CHLORIDE [Concomitant]
     Indication: ADVERSE EVENT
     Route: 065
     Dates: start: 20121022, end: 20121103
  17. POTASSIUM CHLORIDE [Concomitant]
     Route: 065
     Dates: start: 20121218, end: 20121227
  18. POTASSIUM CHLORIDE [Concomitant]
     Route: 065
     Dates: start: 20130130, end: 20130131
  19. POTASSIUM CHLORIDE [Concomitant]
     Route: 065
     Dates: start: 20121111, end: 20121113
  20. FUROSEMIDE [Concomitant]
     Indication: ADVERSE EVENT
     Route: 065
     Dates: start: 20121022, end: 20121025
  21. MORPHINE [Concomitant]
     Indication: ADVERSE EVENT
     Route: 065
     Dates: start: 20121022, end: 20121024
  22. MORPHINE [Concomitant]
     Route: 065
     Dates: start: 20121218, end: 20121228
  23. HEPARIN [Concomitant]
     Indication: ADVERSE EVENT
     Route: 065
     Dates: start: 20121022, end: 20121022
  24. HEPARIN [Concomitant]
     Route: 065
     Dates: start: 20121022, end: 20121115
  25. K-PHOS NEUTRAL [Concomitant]
     Indication: ADVERSE EVENT
     Route: 065
     Dates: start: 20121023, end: 20121031
  26. K-PHOS NEUTRAL [Concomitant]
     Route: 065
     Dates: start: 20121220, end: 20121220
  27. CALCIUM CHLORIDE [Concomitant]
     Indication: ADVERSE EVENT
     Route: 065
     Dates: start: 20121023, end: 20121023
  28. AZTREONAM [Concomitant]
     Indication: ADVERSE EVENT
     Route: 065
     Dates: start: 20121022, end: 20121104
  29. MOXIFLOXACIN [Concomitant]
     Indication: ADVERSE EVENT
     Route: 065
     Dates: start: 20121022, end: 20121022
  30. MOXIFLOXACIN [Concomitant]
     Route: 065
     Dates: start: 20121216, end: 20121216
  31. ASPIRIN [Concomitant]
     Indication: ADVERSE EVENT
     Route: 065
     Dates: start: 20121022
  32. DILTIAZEM [Concomitant]
     Indication: ADVERSE EVENT
     Route: 065
     Dates: start: 20121022
  33. IPRATROPIUM [Concomitant]
     Indication: ADVERSE EVENT
     Route: 055
     Dates: start: 20121023, end: 20121024
  34. CYCLOBENZAPRINE [Concomitant]
     Indication: ADVERSE EVENT
     Route: 065
     Dates: start: 20121022, end: 20121029
  35. HYDROCODONE/ACETAMINOPHEN [Concomitant]
     Indication: ADVERSE EVENT
     Route: 065
     Dates: start: 20121022, end: 20121026
  36. HYDROMORPHONE [Concomitant]
     Indication: ADVERSE EVENT
     Route: 065
     Dates: start: 20121024, end: 20121106
  37. DOCUSATE [Concomitant]
     Indication: ADVERSE EVENT
     Route: 065
     Dates: start: 20121025
  38. GABAPENTIN [Concomitant]
     Indication: ADVERSE EVENT
     Route: 065
     Dates: start: 20121026
  39. ACETAMINOPHEN [Concomitant]
     Indication: ADVERSE EVENT
     Route: 065
     Dates: start: 20121026
  40. POLYETHYLENE GLYCOL [Concomitant]
     Indication: ADVERSE EVENT
     Route: 065
     Dates: start: 20121026, end: 20121104
  41. LIDOCAINE [Concomitant]
     Indication: ADVERSE EVENT
     Route: 065
     Dates: start: 20121027
  42. BISACODYL [Concomitant]
     Indication: ADVERSE EVENT
     Route: 065
     Dates: start: 20121025
  43. BISACODYL [Concomitant]
     Route: 065
     Dates: start: 20121025
  44. SENNA [Concomitant]
     Indication: ADVERSE EVENT
     Route: 065
     Dates: start: 20121025, end: 20121030
  45. SENNA [Concomitant]
     Route: 065
     Dates: start: 20121025
  46. OXYMETAZOLINE [Concomitant]
     Indication: ADVERSE EVENT
     Route: 065
     Dates: start: 20121030, end: 20121031
  47. OXYMETAZOLINE [Concomitant]
     Route: 065
     Dates: start: 20121025
  48. BACLOFEN [Concomitant]
     Indication: ADVERSE EVENT
     Route: 065
     Dates: start: 20121030
  49. BACLOFEN [Concomitant]
     Route: 065
     Dates: start: 20121025
  50. VANCOMYCIN [Concomitant]
     Indication: ADVERSE EVENT
     Route: 065
     Dates: start: 20121111, end: 20121113
  51. VANCOMYCIN [Concomitant]
     Route: 065
     Dates: start: 20130129, end: 20130131
  52. VANCOMYCIN [Concomitant]
     Route: 065
     Dates: start: 20121022, end: 20121104
  53. CIPROFLOXACIN [Concomitant]
     Indication: ADVERSE EVENT
     Route: 065
     Dates: start: 20121113, end: 20121113
  54. CIPROFLOXACIN [Concomitant]
     Route: 065
     Dates: start: 20121025
  55. ENOXAPARIN [Concomitant]
     Indication: ADVERSE EVENT
     Route: 065
     Dates: start: 20121111, end: 20121115
  56. ENOXAPARIN [Concomitant]
     Route: 065
     Dates: start: 20121025
  57. MEROPENEM [Concomitant]
     Indication: ADVERSE EVENT
     Route: 065
     Dates: start: 20121111, end: 20121113
  58. MEROPENEM [Concomitant]
     Route: 065
     Dates: start: 20121025
  59. SMZ-TMP [Concomitant]
     Indication: ADVERSE EVENT
     Route: 065
     Dates: start: 20121113, end: 20121116
  60. SMZ-TMP [Concomitant]
     Route: 065
     Dates: start: 20121025
  61. LEVOPHED [Concomitant]
     Indication: ADVERSE EVENT
     Route: 065
     Dates: start: 20121216, end: 20121216
  62. GENTAMICIN [Concomitant]
     Indication: ADVERSE EVENT
     Route: 065
     Dates: start: 20121218, end: 20121218
  63. CALCIUM GLUCONATE [Concomitant]
     Indication: ADVERSE EVENT
     Route: 065
     Dates: start: 20121218, end: 20121218
  64. CALCIUM GLUCONATE [Concomitant]
     Route: 065
     Dates: start: 20130129, end: 20130131
  65. SODIUM PHOSPHATE [Concomitant]
     Indication: ADVERSE EVENT
     Route: 065
     Dates: start: 20121218, end: 20121227
  66. SODIUM PHOSPHATE [Concomitant]
     Route: 065
     Dates: start: 20130129, end: 20130129
  67. CEFEPIME [Concomitant]
     Indication: ADVERSE EVENT
     Route: 065
     Dates: start: 20121218, end: 20121228
  68. CEFEPIME [Concomitant]
     Route: 065
     Dates: start: 20130129, end: 20130131
  69. LINEZOLID [Concomitant]
     Indication: ADVERSE EVENT
     Route: 065
     Dates: start: 20121218, end: 20121228
  70. LINEZOLID [Concomitant]
     Route: 065
     Dates: start: 20130129, end: 20130131
  71. GUAIFENESIN [Concomitant]
     Indication: ADVERSE EVENT
     Route: 065
     Dates: start: 20121219, end: 20121228
  72. NOREPINEPHRINE [Concomitant]
     Indication: ADVERSE EVENT
     Route: 065
     Dates: start: 20121218, end: 20121218
  73. NOREPINEPHRINE [Concomitant]
     Route: 065
     Dates: start: 20130129, end: 20130131
  74. ONDANSETRON [Concomitant]
     Indication: ADVERSE EVENT
     Route: 065
     Dates: start: 20121220, end: 20121227
  75. DRONABINOL [Concomitant]
     Indication: ADVERSE EVENT
     Route: 065
     Dates: start: 20121226, end: 20130118
  76. AMIODARONE [Concomitant]
     Indication: ADVERSE EVENT
     Route: 065
     Dates: start: 20130129, end: 20130131
  77. CHLORHEXIDINE GLUCONATE [Concomitant]
     Indication: ADVERSE EVENT
     Route: 065
     Dates: start: 20130129, end: 20130131
  78. AZITHROMYCIN [Concomitant]
     Indication: ADVERSE EVENT
     Route: 065
     Dates: start: 20130129, end: 20130131
  79. DIPHENHYDRAMINE [Concomitant]
     Indication: ADVERSE EVENT
     Route: 065
     Dates: start: 20130129, end: 20130131
  80. MIDAZOLAM [Concomitant]
     Indication: ADVERSE EVENT
     Route: 065
     Dates: start: 20130129, end: 20130131
  81. VORICONAZOLE [Concomitant]
     Indication: ADVERSE EVENT
     Route: 065
     Dates: start: 20130129, end: 20130131
  82. FENTANYL [Concomitant]
     Indication: ADVERSE EVENT
     Route: 065
     Dates: start: 20130129, end: 20130131
  83. EPINEPHRINE [Concomitant]
     Indication: ADVERSE EVENT
     Route: 065
     Dates: start: 20130131, end: 20130201

REACTIONS (4)
  - Sepsis [Fatal]
  - Septic shock [Recovered/Resolved]
  - Pneumonia [Not Recovered/Not Resolved]
  - Pneumonia [Recovered/Resolved]
